FAERS Safety Report 13151904 (Version 1)
Quarter: 2017Q1

REPORT INFORMATION
  Report Type: Report from Study
  Country: US (occurrence: US)
  Receive Date: 20170125
  Receipt Date: 20170125
  Transmission Date: 20170428
  Serious: Yes (Hospitalization)
  Sender: FDA-Public Use
  Company Number: PHHO2017US001421

PATIENT

DRUGS (9)
  1. VINCRISTINE [Suspect]
     Active Substance: VINCRISTINE
     Indication: MANTLE CELL LYMPHOMA
     Dosage: 2 MG, BID
     Route: 042
     Dates: start: 20161214, end: 20161216
  2. METHOTREXATE. [Suspect]
     Active Substance: METHOTREXATE
     Indication: MANTLE CELL LYMPHOMA
     Dosage: 1520 MG, QD
     Route: 042
     Dates: start: 20170105, end: 20170105
  3. OFATUMUMAB [Suspect]
     Active Substance: OFATUMUMAB
     Indication: MANTLE CELL LYMPHOMA
     Dosage: 1000 MG, DAY 1 OF EACH CYCLE
     Route: 041
     Dates: start: 20161212, end: 20170103
  4. DOXORUBICIN [Suspect]
     Active Substance: DOXORUBICIN
     Indication: MANTLE CELL LYMPHOMA
     Dosage: 26 MG, Q24H X 3 DAYS
     Route: 041
     Dates: start: 20161217, end: 20161219
  5. MESNA. [Suspect]
     Active Substance: MESNA
     Indication: MANTLE CELL LYMPHOMA
     Dosage: 930 MG, Q24H X 3 DAYS
     Route: 065
     Dates: start: 20161214, end: 20161216
  6. CYCLOPHOSPHAMIDE. [Suspect]
     Active Substance: CYCLOPHOSPHAMIDE
     Indication: MANTLE CELL LYMPHOMA
     Dosage: 465 MG, Q12H X 3 DAYS
     Route: 041
     Dates: start: 20161214, end: 20161216
  7. CYTARABINE. [Suspect]
     Active Substance: CYTARABINE
     Indication: MANTLE CELL LYMPHOMA
     Dosage: 1520 MG, Q12H X 4 DOSES
     Route: 041
     Dates: start: 20170106, end: 20170107
  8. LEUCOVORIN. [Suspect]
     Active Substance: LEUCOVORIN
     Indication: MANTLE CELL LYMPHOMA
     Dosage: 15 MG, Q6H X 3 DAYS
     Route: 065
     Dates: start: 20170106, end: 20170108
  9. DEXAMETHASONE. [Suspect]
     Active Substance: DEXAMETHASONE
     Indication: MANTLE CELL LYMPHOMA
     Dosage: 40 MG, QID
     Route: 041
     Dates: start: 20161224, end: 20161227

REACTIONS (1)
  - Anaemia [Recovered/Resolved]

NARRATIVE: CASE EVENT DATE: 20170117
